FAERS Safety Report 8439436-0 (Version None)
Quarter: 2012Q2

REPORT INFORMATION
  Report Type: 
  Country: None (occurrence: None)
  Receive Date: 20120615
  Receipt Date: 20120606
  Transmission Date: 20120825
  Serious: Yes (Hospitalization)
  Sender: FDA-Public Use
  Company Number: US-BAYER-2012-056775

PATIENT
  Age: 62 Year
  Sex: Female
  Weight: 59.1 kg

DRUGS (13)
  1. LANTUS [Concomitant]
     Dosage: UNK
  2. HYDROCHLOROTHIAZIDE [Concomitant]
     Dosage: UNK
  3. COMPAZINE [Concomitant]
     Dosage: UNK
  4. COLACE [Concomitant]
     Dosage: UNK
  5. METHADONE HCL [Concomitant]
     Dosage: UNK
  6. AVAPRO [Concomitant]
     Dosage: UNK
  7. ZOFRAN [Concomitant]
     Dosage: UNK
  8. MONOCLONAL ANTIBODIES [Suspect]
     Indication: HEPATIC NEOPLASM MALIGNANT
     Dosage: 20 MG/KG, Q3WK
     Route: 042
     Dates: start: 20120309
  9. AMITRIPTYLINE HCL [Concomitant]
     Dosage: UNK
  10. SORAFENIB (RAF KINASE INHIBITOR) [Suspect]
     Indication: HEPATIC NEOPLASM MALIGNANT
     Dosage: 400 MG, BID
     Route: 048
     Dates: start: 20120509, end: 20120513
  11. IMURAN [Concomitant]
     Dosage: UNK
  12. NEXIUM [Concomitant]
     Dosage: UNK
  13. NOVOLOG [Concomitant]

REACTIONS (2)
  - COLITIS [None]
  - PYREXIA [None]
